FAERS Safety Report 7068644-9 (Version None)
Quarter: 2010Q4

REPORT INFORMATION
  Report Type: 
  Country: None (occurrence: None)
  Receive Date: 20101027
  Receipt Date: 20101027
  Transmission Date: 20110411
  Serious: Yes (Life-Threatening)
  Sender: FDA-Public Use
  Company Number: None

PATIENT
  Age: 46 Year
  Sex: Female
  Weight: 71.6683 kg

DRUGS (1)
  1. FENTANYL [Suspect]
     Indication: COMPLEX REGIONAL PAIN SYNDROME
     Dosage: 1 DAILY TRANSDERMAL
     Route: 062
     Dates: start: 20100629, end: 20100630

REACTIONS (4)
  - DIZZINESS [None]
  - DYSPNOEA [None]
  - MALAISE [None]
  - VOMITING [None]
